FAERS Safety Report 23712742 (Version 1)
Quarter: 2024Q2

REPORT INFORMATION
  Report Type: Spontaneous
  Country: BR (occurrence: BR)
  Receive Date: 20240405
  Receipt Date: 20240405
  Transmission Date: 20240716
  Serious: Yes (Other)
  Sender: FDA-Public Use
  Company Number: BR-002147023-NVSC2024BR053171

PATIENT
  Sex: Female
  Weight: 83 kg

DRUGS (6)
  1. ATORVASTATIN [Suspect]
     Active Substance: ATORVASTATIN
     Indication: Blood cholesterol
     Dosage: UNK, 1 TABLET, QD
     Route: 048
  2. COSENTYX [Suspect]
     Active Substance: SECUKINUMAB
     Indication: Psoriatic arthropathy
     Dosage: UNK, 2 PENS, IN THE ABDOMEN, PER 5 WEEKS ROUTE OF ADMIN (FREE TEXT): INJECTION NOT OTHERWISE SPECIFI
     Route: 065
     Dates: start: 202402
  3. CIPROFIBRATE [Concomitant]
     Active Substance: CIPROFIBRATE
     Indication: Blood triglycerides
     Dosage: UNK, 1 TABLET, A DAY
     Route: 048
  4. FOLIC ACID [Concomitant]
     Active Substance: FOLIC ACID
     Indication: Product used for unknown indication
     Dosage: UNK 2 TABLETS, QW
     Route: 048
  5. LOSARTAN [Concomitant]
     Active Substance: LOSARTAN
     Indication: Hypertension
     Dosage: UNK, 1 TABLET, A DAY (ABOUT  10 YEARS  AGO (SHE  COULDN^T  SPECIFY))
     Route: 048
  6. METHOTREXATE [Concomitant]
     Active Substance: METHOTREXATE
     Indication: Psoriasis
     Dosage: UNK, 3 TABLETS, ONCE WEEK, BEFORE  USING OF  COSENTY X (SHE  COULDN^T  SPECIFY)
     Route: 048

REACTIONS (3)
  - Generalised oedema [Not Recovered/Not Resolved]
  - Fluid retention [Not Recovered/Not Resolved]
  - Weight increased [Not Recovered/Not Resolved]

NARRATIVE: CASE EVENT DATE: 20240201
